FAERS Safety Report 14437112 (Version 1)
Quarter: 2018Q1

REPORT INFORMATION
  Report Type: Spontaneous
  Country: US (occurrence: US)
  Receive Date: 20180125
  Receipt Date: 20180125
  Transmission Date: 20180509
  Serious: No
  Sender: FDA-Public Use
  Company Number: None

PATIENT
  Age: 65 Year
  Sex: Male

DRUGS (1)
  1. DESCOVY [Suspect]
     Active Substance: EMTRICITABINE\TENOFOVIR ALAFENAMIDE FUMARATE
     Indication: HIV INFECTION
     Dosage: 200/25MG 1 QD PO
     Route: 048
     Dates: start: 20170823, end: 20171120

REACTIONS (3)
  - Headache [None]
  - Rash [None]
  - Palpitations [None]

NARRATIVE: CASE EVENT DATE: 20171210
